FAERS Safety Report 6278102-7 (Version None)
Quarter: 2009Q3

REPORT INFORMATION
  Report Type: 
  Country: None (occurrence: None)
  Receive Date: 20090722
  Receipt Date: 20070424
  Transmission Date: 20100115
  Serious: Yes (Other)
  Sender: FDA-Public Use
  Company Number: US-ASTRAZENECA-2006UW22188

PATIENT
  Age: 13619 Day
  Sex: Male
  Weight: 131.1 kg

DRUGS (19)
  1. SEROQUEL [Suspect]
     Indication: SCHIZOPHRENIA
     Route: 048
     Dates: start: 20040101, end: 20050712
  2. SEROQUEL [Suspect]
     Dosage: 100-300 MG
     Route: 048
     Dates: start: 20050427
  3. ABILIFY [Concomitant]
  4. GEODON [Concomitant]
  5. HALDOL [Concomitant]
  6. RISPERDAL [Concomitant]
  7. GLYBURIDE [Concomitant]
     Dosage: 2.5 MG-10 MG
     Route: 048
  8. ZESTRIL [Concomitant]
     Dosage: 5 MG-20 MG
     Route: 048
  9. GLUCOPHAGE [Concomitant]
     Route: 048
  10. LANTUS [Concomitant]
     Route: 058
  11. PRECOSE [Concomitant]
     Dosage: 50 MG-150 MG
     Route: 048
  12. TRAZODONE [Concomitant]
     Route: 048
  13. AVANDIA [Concomitant]
     Route: 048
  14. LITHIUM [Concomitant]
     Route: 048
  15. AVANDAMET [Concomitant]
     Route: 048
  16. WELLBUTRIN [Concomitant]
     Route: 048
  17. TRILEPTAL [Concomitant]
     Route: 048
  18. TOPAMAX [Concomitant]
     Route: 048
  19. AMBIEN [Concomitant]
     Route: 048

REACTIONS (2)
  - DIABETES MELLITUS [None]
  - NEUROPATHY PERIPHERAL [None]
